FAERS Safety Report 5262088-8 (Version None)
Quarter: 2007Q1

REPORT INFORMATION
  Report Type: 
  Country: None (occurrence: None)
  Receive Date: 20070311
  Receipt Date: 20070228
  Transmission Date: 20070707
  Serious: Yes (Other)
  Sender: FDA-Public Use
  Company Number: 2006UW25176

PATIENT
  Sex: Male
  Weight: 77.3 kg

DRUGS (6)
  1. SEROQUEL [Suspect]
     Indication: DEPRESSION
     Route: 048
     Dates: start: 20051115
  2. SEROQUEL [Suspect]
     Indication: SLEEP DISORDER
     Route: 048
     Dates: start: 20051115
  3. SEROQUEL [Suspect]
     Indication: HALLUCINATION, AUDITORY
     Route: 048
     Dates: start: 20051115
  4. HALDOL [Concomitant]
  5. RISPERDAL [Concomitant]
  6. THORAZINE [Concomitant]

REACTIONS (2)
  - DIABETES MELLITUS [None]
  - TARDIVE DYSKINESIA [None]
